FAERS Safety Report 5301812-2 (Version None)
Quarter: 2007Q2

REPORT INFORMATION
  Report Type: 
  Country: None (occurrence: None)
  Receive Date: 20070416
  Receipt Date: 20070416
  Transmission Date: 20071010
  Serious: Yes (Other)
  Sender: FDA-Public Use
  Company Number: None

PATIENT
  Age: 54 Year
  Sex: Male
  Weight: 95.2554 kg

DRUGS (2)
  1. CORDIS 3.0 X 33MM CYPHER STENT SIROLIMUS JOHNSON + JOHNSON [Suspect]
     Indication: CORONARY ARTERY OCCLUSION
  2. TAXUS PACLITAXEL BOSTON SCIENTIFIC [Suspect]
     Indication: CORONARY ARTERY OCCLUSION

REACTIONS (17)
  - ACROMEGALY [None]
  - BACK PAIN [None]
  - BLOOD CHOLESTEROL INCREASED [None]
  - CHEST PAIN [None]
  - EPISTAXIS [None]
  - EYE MOVEMENT DISORDER [None]
  - HAIR GROWTH ABNORMAL [None]
  - HYPERTENSION [None]
  - HYPOAESTHESIA [None]
  - INSOMNIA [None]
  - MENTAL STATUS CHANGES [None]
  - MOOD ALTERED [None]
  - MYALGIA [None]
  - NEOPLASM MALIGNANT [None]
  - PARAESTHESIA [None]
  - POLLAKIURIA [None]
  - THROAT IRRITATION [None]
